FAERS Safety Report 24229856 (Version 1)
Quarter: 2024Q3

REPORT INFORMATION
  Report Type: Spontaneous
  Country: US (occurrence: US)
  Receive Date: 20240820
  Receipt Date: 20240820
  Transmission Date: 20241016
  Serious: No
  Sender: JOHNSON AND JOHNSON
  Company Number: US-ViiV Healthcare Limited-114133

PATIENT
  Sex: Female

DRUGS (2)
  1. RILPIVIRINE [Suspect]
     Active Substance: RILPIVIRINE
     Indication: HIV infection
     Dosage: UNK, EVERY 56 DAYS, 600/ 900 MG
     Route: 030
     Dates: start: 202208
  2. CABOTEGRAVIR [Suspect]
     Active Substance: CABOTEGRAVIR
     Indication: HIV infection
     Dosage: UNK, EVERY 56 DAYS, 600/ 900 MG
     Route: 030
     Dates: start: 202208

REACTIONS (3)
  - Bed bug infestation [Unknown]
  - Acarodermatitis [Unknown]
  - Rash papular [Not Recovered/Not Resolved]
